FAERS Safety Report 7812612-3 (Version None)
Quarter: 2011Q4

REPORT INFORMATION
  Report Type: 
  Country: None (occurrence: None)
  Receive Date: 20111013
  Receipt Date: 20110707
  Transmission Date: 20120403
  Serious: No
  Sender: FDA-Public Use
  Company Number: US-NOVEN-11US002761

PATIENT
  Age: 49 Year
  Sex: Male
  Weight: 90.703 kg

DRUGS (2)
  1. FENTANYL [Suspect]
     Indication: PAIN
     Dosage: 100 UG/HR
     Route: 062
     Dates: start: 20110701
  2. FENTANYL [Suspect]
     Dosage: UNK
     Dates: start: 20080101, end: 20110701

REACTIONS (6)
  - APPLICATION SITE SCAB [None]
  - DRUG WITHDRAWAL SYNDROME [None]
  - INADEQUATE ANALGESIA [None]
  - PRODUCT QUALITY ISSUE [None]
  - APPLICATION SITE BURN [None]
  - DRUG ADMINISTRATION ERROR [None]
